FAERS Safety Report 25172543 (Version 3)
Quarter: 2025Q2

REPORT INFORMATION
  Report Type: Spontaneous
  Country: US (occurrence: US)
  Receive Date: 20250408
  Receipt Date: 20250616
  Transmission Date: 20250716
  Serious: No
  Sender: BRISTOL-MYERS SQUIBB COMPANY
  Company Number: US-BRISTOL-MYERS SQUIBB COMPANY-2025-051678

PATIENT
  Age: 68 Year
  Sex: Female
  Weight: 70.76 kg

DRUGS (2)
  1. REVLIMID [Suspect]
     Active Substance: LENALIDOMIDE
     Indication: Plasma cell myeloma
     Route: 048
  2. BORTEZOMIB [Suspect]
     Active Substance: BORTEZOMIB
     Indication: Product used for unknown indication

REACTIONS (5)
  - Hypersensitivity [Recovering/Resolving]
  - Headache [Recovered/Resolved]
  - Weight increased [Recovered/Resolved]
  - Injection site hypersensitivity [Recovered/Resolved]
  - Product dose omission issue [Unknown]
